FAERS Safety Report 7548846-5 (Version None)
Quarter: 2011Q2

REPORT INFORMATION
  Report Type: 
  Country: None (occurrence: None)
  Receive Date: 20110615
  Receipt Date: 20110608
  Transmission Date: 20111010
  Serious: Yes (Other)
  Sender: FDA-Public Use
  Company Number: CA-PFIZER INC-2011125161

PATIENT
  Age: 73 Year
  Sex: Female

DRUGS (2)
  1. COSOPT [Concomitant]
     Indication: GLAUCOMA
     Dosage: 1 GTT IN BOTH EYES
  2. XALATAN [Suspect]
     Indication: GLAUCOMA
     Dosage: 1 GTT IN BOTH EYES
     Route: 047

REACTIONS (2)
  - CATARACT OPERATION [None]
  - LASER THERAPY [None]
